FAERS Safety Report 21077794 (Version 8)
Quarter: 2023Q2

REPORT INFORMATION
  Report Type: Spontaneous
  Country: US (occurrence: US)
  Receive Date: 20220713
  Receipt Date: 20230627
  Transmission Date: 20230721
  Serious: No
  Sender: FDA-Public Use
  Company Number: US-PFIZER INC-PV202200021760

PATIENT
  Age: 64 Year
  Sex: Male

DRUGS (1)
  1. TIKOSYN [Suspect]
     Active Substance: DOFETILIDE
     Indication: Atrial fibrillation
     Dosage: 500 UG, 2X/DAY (1 CAPSULE BY MOUTH TWO TIMES DAILY.)
     Route: 048
     Dates: start: 20220523

REACTIONS (2)
  - Amnesia [Unknown]
  - Off label use [Unknown]
